FAERS Safety Report 8354752-9 (Version None)
Quarter: 2012Q2

REPORT INFORMATION
  Report Type: 
  Country: None (occurrence: None)
  Receive Date: 20120511
  Receipt Date: 20120507
  Transmission Date: 20120825
  Serious: Yes (Hospitalization)
  Sender: FDA-Public Use
  Company Number: BR-GLAXOSMITHKLINE-B0799003A

PATIENT
  Sex: Female
  Weight: 70 kg

DRUGS (3)
  1. PROPAFENONE HCL [Suspect]
     Indication: ARRHYTHMIA
     Route: 048
     Dates: start: 20120301, end: 20120501
  2. METFORMIN HYDROCHLORIDE [Concomitant]
     Indication: BLOOD GLUCOSE
     Route: 048
  3. BENICAR HCT [Concomitant]
     Indication: BLOOD PRESSURE
     Route: 048

REACTIONS (5)
  - MEMORY IMPAIRMENT [None]
  - DEPRESSION [None]
  - URINARY TRACT INFECTION [None]
  - CONFUSIONAL STATE [None]
  - DEMENTIA [None]
